FAERS Safety Report 14343616 (Version 1)
Quarter: 2018Q1

REPORT INFORMATION
  Report Type: Spontaneous
  Country: US (occurrence: US)
  Receive Date: 20180102
  Receipt Date: 20180102
  Transmission Date: 20180509
  Serious: No
  Sender: FDA-Public Use
  Company Number: US-BAYER-2017-251671

PATIENT
  Age: 57 Year
  Sex: Female

DRUGS (1)
  1. BETASERON [Suspect]
     Active Substance: INTERFERON BETA-1B

REACTIONS (5)
  - Paraesthesia [None]
  - Back pain [None]
  - Neck pain [None]
  - Influenza like illness [None]
  - Fall [None]

NARRATIVE: CASE EVENT DATE: 2013
